FAERS Safety Report 6834789-9 (Version None)
Quarter: 2010Q3

REPORT INFORMATION
  Report Type: 
  Country: None (occurrence: None)
  Receive Date: 20100712
  Receipt Date: 20070417
  Transmission Date: 20110219
  Serious: No
  Sender: FDA-Public Use
  Company Number: US-PFIZER INC-2007031609

PATIENT
  Sex: Female
  Weight: 63 kg

DRUGS (4)
  1. CHANTIX [Suspect]
     Indication: SMOKING CESSATION THERAPY
     Dates: start: 20070401
  2. WELLBUTRIN [Concomitant]
     Indication: PANIC ATTACK
  3. TOPAMAX [Concomitant]
     Indication: MIGRAINE
  4. PROGESTERONE [Concomitant]

REACTIONS (3)
  - CONSTIPATION [None]
  - FLATULENCE [None]
  - NAUSEA [None]
